FAERS Safety Report 10100771 (Version 2)
Quarter: 2014Q2

REPORT INFORMATION
  Report Type: Report from Study
  Country: US (occurrence: US)
  Receive Date: 20140423
  Receipt Date: 20140502
  Transmission Date: 20141212
  Serious: Yes (Other)
  Sender: FDA-Public Use
  Company Number: US-ABBVIE-14P-163-1226042-00

PATIENT
  Age: 66 Year
  Sex: Male
  Weight: 99 kg

DRUGS (1)
  1. HUMIRA [Suspect]
     Indication: COLITIS ULCERATIVE
     Dates: start: 201211

REACTIONS (4)
  - Spinal column stenosis [Recovering/Resolving]
  - Intervertebral disc protrusion [Recovering/Resolving]
  - Pain [Recovering/Resolving]
  - Injection site pain [Recovered/Resolved]
